FAERS Safety Report 12897338 (Version 1)
Quarter: 2016Q4

REPORT INFORMATION
  Report Type: Report from Study
  Country: BR (occurrence: BR)
  Receive Date: 20161031
  Receipt Date: 20161031
  Transmission Date: 20170207
  Serious: Yes (Other)
  Sender: FDA-Public Use
  Company Number: BR-BIOGEN-2016BI00310355

PATIENT
  Sex: Female

DRUGS (4)
  1. TECFIDERA [Suspect]
     Active Substance: DIMETHYL FUMARATE
     Route: 065
  2. TECFIDERA [Suspect]
     Active Substance: DIMETHYL FUMARATE
     Indication: MULTIPLE SCLEROSIS
     Route: 065
     Dates: start: 201607
  3. TECFIDERA [Suspect]
     Active Substance: DIMETHYL FUMARATE
     Route: 065
  4. DIMINUT (GESTODENE + ETHINYL ESTRADIOL) [Concomitant]
     Indication: CONTRACEPTION
     Route: 065

REACTIONS (3)
  - Lactose intolerance [Unknown]
  - Gastrointestinal carcinoma [Unknown]
  - Intentional underdose [Unknown]
